FAERS Safety Report 20711792 (Version 1)
Quarter: 2022Q2

REPORT INFORMATION
  Report Type: Spontaneous
  Country: AU (occurrence: AU)
  Receive Date: 20220414
  Receipt Date: 20220414
  Transmission Date: 20220721
  Serious: Yes (Hospitalization, Other)
  Sender: FDA-Public Use
  Company Number: AU-PURDUE-USA-2022-0293138

PATIENT

DRUGS (3)
  1. LIDOCAINE [Suspect]
     Active Substance: LIDOCAINE
     Indication: Headache
     Dosage: 2 MG/MIN, UNK
     Route: 042
  2. LIDOCAINE [Suspect]
     Active Substance: LIDOCAINE
     Indication: SUNCT syndrome
  3. LIDOCAINE [Suspect]
     Active Substance: LIDOCAINE
     Indication: Migraine

REACTIONS (9)
  - Paraesthesia [Unknown]
  - Anxiety [Unknown]
  - Dizziness [Unknown]
  - Arrhythmia [Unknown]
  - Hypotension [Unknown]
  - Chest pain [Unknown]
  - Confusional state [Unknown]
  - Rash [Unknown]
  - Nausea [Unknown]
